FAERS Safety Report 18473165 (Version 1)
Quarter: 2020Q4

REPORT INFORMATION
  Report Type: Spontaneous
  Country: NL (occurrence: NL)
  Receive Date: 20201106
  Receipt Date: 20201106
  Transmission Date: 20210114
  Serious: Yes (Other)
  Sender: FDA-Public Use
  Company Number: NL-JNJFOC-20201104349

PATIENT
  Age: 70 Year
  Sex: Female
  Weight: 58 kg

DRUGS (4)
  1. LEVETIRACETAM. [Suspect]
     Active Substance: LEVETIRACETAM
     Indication: SEIZURE
     Route: 065
     Dates: start: 202007
  2. VALERIAAN [Concomitant]
     Active Substance: VALERIAN
     Dosage: DRUPPELS
  3. MIDAZOLAM. [Suspect]
     Active Substance: MIDAZOLAM
     Indication: SEDATIVE THERAPY
     Route: 065
     Dates: start: 202008
  4. HALDOL [Suspect]
     Active Substance: HALOPERIDOL
     Indication: RESTLESSNESS
     Route: 065
     Dates: start: 202008

REACTIONS (5)
  - Grimacing [Not Recovered/Not Resolved]
  - Tic [Not Recovered/Not Resolved]
  - Weight decreased [Not Recovered/Not Resolved]
  - Hallucination [Not Recovered/Not Resolved]
  - Restlessness [Not Recovered/Not Resolved]

NARRATIVE: CASE EVENT DATE: 20200729
